FAERS Safety Report 4471482-4 (Version None)
Quarter: 2004Q4

REPORT INFORMATION
  Report Type: 
  Country: None (occurrence: None)
  Receive Date: 20041006
  Receipt Date: 20040922
  Transmission Date: 20050328
  Serious: Yes (Death)
  Sender: FDA-Public Use
  Company Number: S04-NOR-03814-01

PATIENT
  Age: 73 Year
  Sex: Female
  Weight: 42 kg

DRUGS (2)
  1. CIPRAMIL (CITALOPRAM HYDROBROMIDE) [Suspect]
     Dosage: 40 MG QD PO
     Route: 048
     Dates: start: 20040301, end: 20040403
  2. CIPRAMIL (CITALOPRAM HYDROBROMIDE) [Suspect]
     Dosage: 20 MG QD PO
     Route: 048
     Dates: start: 20031001, end: 20040301

REACTIONS (14)
  - AORTIC ATHEROSCLEROSIS [None]
  - BLOOD PH DECREASED [None]
  - CORONARY ARTERY ATHEROSCLEROSIS [None]
  - DEMENTIA ALZHEIMER'S TYPE [None]
  - DRUG TOXICITY [None]
  - HEART RATE INCREASED [None]
  - HEPATIC FAILURE [None]
  - MITRAL VALVE DISEASE [None]
  - MULTI-ORGAN FAILURE [None]
  - NERVOUS SYSTEM DISORDER [None]
  - OVERDOSE [None]
  - PARKINSONISM [None]
  - PCO2 DECREASED [None]
  - PO2 DECREASED [None]
